FAERS Safety Report 11858218 (Version 7)
Quarter: 2018Q1

REPORT INFORMATION
  Report Type: Spontaneous
  Country: JP (occurrence: JP)
  Receive Date: 20151222
  Receipt Date: 20180205
  Transmission Date: 20180508
  Serious: Yes (Life-Threatening, Hospitalization, Other)
  Sender: FDA-Public Use
  Company Number: JP-BRISTOL-MYERS SQUIBB COMPANY-BMS-2015-088611

PATIENT
  Age: 76 Year
  Sex: Male
  Weight: 44 kg

DRUGS (14)
  1. ERBITUX [Suspect]
     Active Substance: CETUXIMAB
     Indication: HYPOPHARYNGEAL CANCER
     Dosage: 550 MG, WEEKLY (1/W)
     Route: 042
     Dates: start: 20151001, end: 20151001
  2. MINOMYCIN [Concomitant]
     Active Substance: MINOCYCLINE HYDROCHLORIDE
     Indication: PROPHYLAXIS
     Dosage: 100 MG, BID
     Route: 050
     Dates: start: 20150929, end: 20151205
  3. LYRICA [Concomitant]
     Active Substance: PREGABALIN
     Indication: NEURALGIA
     Dosage: UNK UNK, UNKNOWN
     Route: 048
     Dates: start: 20150930
  4. CONIEL [Concomitant]
     Active Substance: BENIDIPINE HYDROCHLORIDE
     Indication: HYPERTENSION
     Dosage: 4 MG, QD
     Route: 050
     Dates: start: 20150930, end: 20151205
  5. LYRICA [Concomitant]
     Active Substance: PREGABALIN
     Dosage: 75 MG, BID
     Route: 050
     Dates: start: 20151106, end: 20151205
  6. CALONAL [Concomitant]
     Active Substance: ACETAMINOPHEN
     Indication: PAIN
     Dosage: 600 MG, QID
     Route: 050
     Dates: start: 20151029, end: 20151205
  7. PONSTEL [Concomitant]
     Active Substance: MEFENAMIC ACID
     Indication: PAIN
     Dosage: 8 ML, TID
     Route: 050
     Dates: start: 20150929, end: 20151205
  8. TAKEPRON [Suspect]
     Active Substance: LANSOPRAZOLE
     Indication: GASTRIC ULCER
     Dosage: 30 MG, DAILY
     Route: 050
     Dates: end: 20151205
  9. FENTOS [Suspect]
     Active Substance: FENTANYL
     Indication: PAIN
     Dosage: 1 MG, UNKNOWN
     Route: 065
     Dates: start: 20151206, end: 20151207
  10. FENTOS [Suspect]
     Active Substance: FENTANYL
     Dosage: 2 MG, UNKNOWN
     Route: 065
     Dates: start: 20151208
  11. AZILSARTAN [Concomitant]
     Active Substance: AZILSARTAN KAMEDOXOMIL
     Indication: HYPERTENSION
     Dosage: 40 MG, QD
     Route: 050
     Dates: start: 20150930, end: 20151205
  12. WARFARIN K [Concomitant]
     Active Substance: WARFARIN POTASSIUM
     Indication: ATRIAL FIBRILLATION
     Dosage: 1.5 MG, QD
     Route: 050
     Dates: start: 20151111, end: 20151205
  13. ERBITUX [Suspect]
     Active Substance: CETUXIMAB
     Indication: LARYNGEAL CANCER
     Dosage: 340 MG, QWK
     Route: 042
     Dates: start: 20151008, end: 20151126
  14. LENDORMIN [Concomitant]
     Active Substance: BROTIZOLAM
     Indication: INSOMNIA
     Dosage: .25 MG, QD
     Route: 050
     Dates: start: 20151027, end: 20151205

REACTIONS (9)
  - Pneumatosis [Recovered/Resolved]
  - Gastroenteritis staphylococcal [Recovering/Resolving]
  - Mucosal inflammation [Unknown]
  - Pain in extremity [Unknown]
  - Urinary retention [Unknown]
  - Diarrhoea [Unknown]
  - Pleural effusion [Unknown]
  - Somnolence [Unknown]
  - Peripheral swelling [Unknown]

NARRATIVE: CASE EVENT DATE: 201512
